FAERS Safety Report 4712445-0 (Version None)
Quarter: 2005Q3

REPORT INFORMATION
  Report Type: 
  Country: None (occurrence: None)
  Receive Date: 20050712
  Receipt Date: 20050606
  Transmission Date: 20060218
  Serious: Yes (Other)
  Sender: FDA-Public Use
  Company Number: PHEH2005US06348

PATIENT
  Age: 75 Year
  Sex: Female
  Weight: 58 kg

DRUGS (3)
  1. DIOVAN [Suspect]
     Indication: HYPERTENSION
     Dosage: 80 MG, QD
     Route: 048
     Dates: start: 20050317, end: 20050525
  2. TENORMIN [Concomitant]
  3. TOPROL-XL [Concomitant]
     Dosage: 50, UNK
     Dates: start: 20050504

REACTIONS (6)
  - CHEST DISCOMFORT [None]
  - DIZZINESS [None]
  - ELECTROCARDIOGRAM ABNORMAL [None]
  - HEART RATE INCREASED [None]
  - PALPITATIONS [None]
  - VISION BLURRED [None]
